FAERS Safety Report 12312942 (Version 1)
Quarter: 2016Q2

REPORT INFORMATION
  Report Type: Report from Study
  Country: US (occurrence: US)
  Receive Date: 20160428
  Receipt Date: 20160428
  Transmission Date: 20160815
  Serious: No
  Sender: FDA-Public Use
  Company Number: US-AMGEN-USASL2016053425

PATIENT
  Age: 64 Year
  Sex: Female

DRUGS (1)
  1. ENBREL [Suspect]
     Active Substance: ETANERCEPT
     Indication: PRODUCT USED FOR UNKNOWN INDICATION
     Dosage: UNK
     Route: 065

REACTIONS (8)
  - Injection site reaction [Unknown]
  - Headache [Unknown]
  - Melanocytic naevus [Unknown]
  - Impaired healing [Unknown]
  - Scab [Unknown]
  - Pain [Unknown]
  - Musculoskeletal stiffness [Unknown]
  - Pruritus [Unknown]
